FAERS Safety Report 9006033 (Version 1)
Quarter: 2013Q1

REPORT INFORMATION
  Report Type: Spontaneous
  Country: GB (occurrence: GB)
  Receive Date: 20130109
  Receipt Date: 20130109
  Transmission Date: 20140127
  Serious: Yes (Other)
  Sender: FDA-Public Use
  Company Number: PHHY2013GB001763

PATIENT
  Age: 45 Year
  Sex: Female
  Weight: 73.4 kg

DRUGS (5)
  1. OXALIPLATIN [Suspect]
     Indication: CHEMOTHERAPY
     Dates: start: 20061115, end: 20070404
  2. IRINOTECAN [Suspect]
     Indication: CHEMOTHERAPY
  3. 5-FLUOROURACIL [Suspect]
     Indication: CHEMOTHERAPY
  4. FOLINIC ACID [Suspect]
     Indication: CHEMOTHERAPY
  5. CAPECITABINE [Concomitant]
     Indication: NEOPLASM MALIGNANT
     Route: 048
     Dates: start: 20061115, end: 20070418

REACTIONS (4)
  - Neurotoxicity [Recovered/Resolved]
  - Neuropathy peripheral [Recovered/Resolved]
  - Areflexia [Recovered/Resolved]
  - Nausea [Recovered/Resolved]
